FAERS Safety Report 10078943 (Version 1)
Quarter: 2014Q2

REPORT INFORMATION
  Report Type: Spontaneous
  Country: DE (occurrence: DE)
  Receive Date: 20140415
  Receipt Date: 20140415
  Transmission Date: 20141212
  Serious: Yes (Other)
  Sender: FDA-Public Use
  Company Number: DE-BAYER-2014-055361

PATIENT
  Sex: Male

DRUGS (2)
  1. ASS [Suspect]
     Indication: HEART VALVE REPLACEMENT
  2. MARCUMAR [Suspect]
     Indication: HEART VALVE REPLACEMENT

REACTIONS (1)
  - Endocarditis [None]
